FAERS Safety Report 25345348 (Version 1)
Quarter: 2025Q2

REPORT INFORMATION
  Report Type: Spontaneous
  Country: CN (occurrence: CN)
  Receive Date: 20250522
  Receipt Date: 20250522
  Transmission Date: 20250716
  Serious: Yes (Other)
  Sender: QILU PHARMACEUTICAL
  Company Number: CN-QILU PHARMACEUTICAL CO.LTD.-QLU-000103-2025

PATIENT
  Age: 75 Year
  Sex: Male

DRUGS (3)
  1. ABIRATERONE ACETATE [Suspect]
     Active Substance: ABIRATERONE ACETATE
     Indication: Neuroendocrine carcinoma of prostate
     Route: 065
     Dates: start: 202210
  2. FLUZOPARIB [Suspect]
     Active Substance: FLUZOPARIB
     Indication: Neuroendocrine carcinoma of prostate
     Route: 065
     Dates: start: 202210
  3. GOSERELIN [Suspect]
     Active Substance: GOSERELIN
     Indication: Neuroendocrine carcinoma of prostate
     Route: 065
     Dates: start: 202210

REACTIONS (2)
  - Thrombocytopenia [Unknown]
  - Anaemia [Unknown]
